FAERS Safety Report 9624859 (Version 2)
Quarter: 2014Q1

REPORT INFORMATION
  Report Type: Spontaneous
  Country: US (occurrence: US)
  Receive Date: 20131016
  Receipt Date: 20140210
  Transmission Date: 20141002
  Serious: Yes (Other)
  Sender: FDA-Public Use
  Company Number: US-JNJFOC-20131001201

PATIENT
  Sex: Female
  Weight: 69.85 kg

DRUGS (2)
  1. BENADRYL LIQUID [Suspect]
     Indication: UPPER-AIRWAY COUGH SYNDROME
     Dosage: MANY YEARS AGO
     Route: 048
     Dates: end: 2003
  2. BENADRYL LIQUID [Suspect]
     Indication: ALLERGIC SINUSITIS
     Dosage: MANY YEARS AGO
     Route: 048
     Dates: end: 2003

REACTIONS (4)
  - Retinal vascular thrombosis [Not Recovered/Not Resolved]
  - Optic neuropathy [Not Recovered/Not Resolved]
  - Hypotension [Not Recovered/Not Resolved]
  - Product label issue [Unknown]
